FAERS Safety Report 7041563-X (Version None)
Quarter: 2010Q4

REPORT INFORMATION
  Report Type: 
  Country: None (occurrence: None)
  Receive Date: 20101013
  Receipt Date: 20100413
  Transmission Date: 20110411
  Serious: No
  Sender: FDA-Public Use
  Company Number: US-ASTRAZENECA-2010SE16297

PATIENT
  Sex: Female
  Weight: 104.3 kg

DRUGS (1)
  1. SYMBICORT [Suspect]
     Dosage: 320 MCG, TWO PUFFS
     Route: 055
     Dates: start: 20100406

REACTIONS (3)
  - DYSPNOEA [None]
  - EYE PRURITUS [None]
  - PRURITUS GENERALISED [None]
